FAERS Safety Report 23339428 (Version 1)
Quarter: 2023Q4

REPORT INFORMATION
  Report Type: Report from Study
  Country: US (occurrence: US)
  Receive Date: 20231226
  Receipt Date: 20231226
  Transmission Date: 20240110
  Serious: Yes (Hospitalization)
  Sender: FDA-Public Use
  Company Number: US-MTPC-MTDA2023-0029739

PATIENT
  Sex: Female

DRUGS (4)
  1. RADICAVA [Suspect]
     Active Substance: EDARAVONE
     Indication: Amyotrophic lateral sclerosis
     Dosage: 5 MILLILITER, QD FOR 10 OUT OF 14 DAYS THEN 14 DAYS OFF
     Route: 048
     Dates: start: 202308
  2. RADICAVA [Suspect]
     Active Substance: EDARAVONE
     Indication: Amyotrophic lateral sclerosis
     Dosage: 5 MILLILITER, QD FOR 10 OUT OF 14 DAYS THEN 14 DAYS OFF
     Route: 048
     Dates: start: 202308
  3. RADICAVA [Suspect]
     Active Substance: EDARAVONE
     Dosage: MAINTENANCE DOSE
     Route: 048
     Dates: start: 202309
  4. RADICAVA [Suspect]
     Active Substance: EDARAVONE
     Dosage: MAINTENANCE DOSE
     Route: 048
     Dates: start: 202309

REACTIONS (2)
  - Cough [Unknown]
  - Dyspnoea [Unknown]
